FAERS Safety Report 7198454-3 (Version None)
Quarter: 2010Q4

REPORT INFORMATION
  Report Type: 
  Country: None (occurrence: None)
  Receive Date: 20101227
  Receipt Date: 20101217
  Transmission Date: 20110411
  Serious: No
  Sender: FDA-Public Use
  Company Number: US-JNJFOC-20101207275

PATIENT
  Sex: Female
  Weight: 74.84 kg

DRUGS (5)
  1. FENTANYL-100 [Suspect]
     Indication: RIB FRACTURE
     Route: 062
  2. FENTANYL-100 [Suspect]
     Indication: UPPER LIMB FRACTURE
     Route: 062
  3. OXYCONTIN [Concomitant]
     Indication: BREAKTHROUGH PAIN
     Route: 065
  4. LASIX [Concomitant]
     Route: 048
  5. POTASSIUM [Concomitant]
     Route: 048

REACTIONS (4)
  - DRUG INEFFECTIVE [None]
  - PAIN [None]
  - TEARFULNESS [None]
  - TREATMENT NONCOMPLIANCE [None]
